FAERS Safety Report 8962449 (Version 2)
Quarter: 2013Q1

REPORT INFORMATION
  Report Type: Spontaneous
  Country: US (occurrence: None)
  Receive Date: 20121205
  Receipt Date: 20130110
  Transmission Date: 20140127
  Serious: Yes (Death)
  Sender: FDA-Public Use
  Company Number: DKLU1086714

PATIENT
  Age: 9 Year
  Sex: Male

DRUGS (19)
  1. SABRIL [Suspect]
     Indication: INFANTILE SPASMS
     Dosage: 1000 MG MILLIGRAM(S), 2 IN 1 D, ORAL
     Route: 048
     Dates: start: 20100202
  2. SABRIL [Suspect]
     Indication: ENCEPHALOPATHY
     Dosage: 1000 MG MILLIGRAM(S), 2 IN 1 D, ORAL
     Route: 048
     Dates: start: 20100202
  3. ONFI [Concomitant]
  4. BANZEL (RUFINAMIDE) [Concomitant]
  5. KEPPRA (LEVETIRACETAM) [Concomitant]
  6. PHENOBARBITAL (PHENOBARBITAL) [Concomitant]
  7. NEURONTIN (GABAPENTIN) [Concomitant]
  8. PULMICORT (BUDESONIDE) [Concomitant]
  9. TOBRAMYCIN (TOBRAMYCIN) [Concomitant]
  10. XOPENEX (LEVOSALBUTAMOL HYDROCHLORIDE) [Concomitant]
  11. CHLOROTHIAZIDE (CHLOROTHIAZIDE) [Concomitant]
  12. ZANTAC (RANITIDINE HYDROCHLORIDE) [Concomitant]
  13. POLYLCITRA (CYTRA-K) (POLYCITRA /00158701/) [Concomitant]
  14. MAGNESIUM (MAGNESIUM) [Concomitant]
  15. MVI (VITAMINS NOS) [Concomitant]
  16. FESO4 (FERROUS SULFATE) [Concomitant]
  17. FOLIC ACID (FOLIC ACID) [Concomitant]
  18. B6 (PYRIDOXINE HYDROCHLORIDE) [Concomitant]
  19. B1 (THIAMINE HYDROCHLORIDE) [Concomitant]

REACTIONS (1)
  - Death [None]
